FAERS Safety Report 10589854 (Version 2)
Quarter: 2014Q4

REPORT INFORMATION
  Report Type: Other
  Country: IT (occurrence: IT)
  Receive Date: 20141118
  Receipt Date: 20141121
  Transmission Date: 20150529
  Serious: Yes (Hospitalization)
  Sender: FDA-Public Use
  Company Number: IT-MYLANLABS-2014M1010707

PATIENT
  Age: 43 Year
  Sex: Female

DRUGS (1)
  1. PACLITAXEL MYLAN GENERICS 6MG/ML CONCENTRATE FOR SOLUTION FOR INFUSION [Suspect]
     Active Substance: PACLITAXEL
     Indication: BREAST CANCER
     Dosage: 125 MG TOTAL
     Route: 042
     Dates: start: 20140930, end: 20140930

REACTIONS (2)
  - Flushing [Recovered/Resolved]
  - Bronchostenosis [Recovered/Resolved]

NARRATIVE: CASE EVENT DATE: 20140930
